FAERS Safety Report 18235598 (Version 2)
Quarter: 2020Q4

REPORT INFORMATION
  Report Type: Spontaneous
  Country: JP (occurrence: JP)
  Receive Date: 20200905
  Receipt Date: 20201111
  Transmission Date: 20210113
  Serious: Yes (Death, Other)
  Sender: FDA-Public Use
  Company Number: JP-AMGEN-JPNSP2020144299

PATIENT
  Age: 69 Year
  Sex: Female
  Weight: 72.8 kg

DRUGS (12)
  1. CORALAN [Suspect]
     Active Substance: IVABRADINE HYDROCHLORIDE
     Indication: PRODUCT USED FOR UNKNOWN INDICATION
     Dosage: 2.5 MILLIGRAM, QD
     Route: 048
     Dates: start: 20200624, end: 20200626
  2. CORALAN [Suspect]
     Active Substance: IVABRADINE HYDROCHLORIDE
     Dosage: 2.5 MILLIGRAM, BID
     Route: 048
     Dates: start: 20200627, end: 20200630
  3. LASIX [Concomitant]
     Active Substance: FUROSEMIDE
     Indication: CARDIAC FAILURE
     Dosage: 100 MILLIGRAM, ONE DOSE
     Route: 042
     Dates: start: 20200617, end: 20200617
  4. LASIX [Concomitant]
     Active Substance: FUROSEMIDE
     Dosage: 20 MILLIGRAM, QD
     Route: 042
     Dates: start: 20200618, end: 20200705
  5. SAMSCA [Concomitant]
     Active Substance: TOLVAPTAN
     Indication: CIRCULATORY COLLAPSE
     Dosage: 7.5 MILLIGRAM
     Route: 065
     Dates: start: 20200618
  6. LASIX [Concomitant]
     Active Substance: FUROSEMIDE
     Dosage: 40 MILLIGRAM, QD
     Route: 048
     Dates: start: 20200706, end: 20200708
  7. LASIX [Concomitant]
     Active Substance: FUROSEMIDE
     Dosage: 40 MILLIGRAM, BID
     Route: 048
     Dates: start: 20200709, end: 20200714
  8. DOBUTAMINE HYDROCHLORIDE. [Concomitant]
     Active Substance: DOBUTAMINE HYDROCHLORIDE
     Dosage: UNK
     Route: 065
     Dates: start: 20200714
  9. FLUITRAN [Concomitant]
     Active Substance: TRICHLORMETHIAZIDE
     Indication: PRODUCT USED FOR UNKNOWN INDICATION
     Dosage: 1 MILLIGRAM, QD
     Route: 048
     Dates: start: 20200708, end: 20200710
  10. CORALAN [Suspect]
     Active Substance: IVABRADINE HYDROCHLORIDE
     Dosage: 5 MILLIGRAM
     Route: 048
     Dates: start: 20200701, end: 20200719
  11. LASIX [Concomitant]
     Active Substance: FUROSEMIDE
     Dosage: 60 MILLIGRAM, QD
     Route: 042
     Dates: start: 20200715, end: 20200722
  12. DOBUTAMINE HYDROCHLORIDE. [Concomitant]
     Active Substance: DOBUTAMINE HYDROCHLORIDE
     Indication: CIRCULATORY COLLAPSE
     Dosage: UNK
     Route: 065
     Dates: start: 20200618, end: 20200704

REACTIONS (3)
  - Cardiac failure [Fatal]
  - Inappropriate antidiuretic hormone secretion [Unknown]
  - Hyponatraemia [Fatal]

NARRATIVE: CASE EVENT DATE: 2020
